FAERS Safety Report 8340460-7 (Version None)
Quarter: 2012Q2

REPORT INFORMATION
  Report Type: 
  Country: None (occurrence: None)
  Receive Date: 20120507
  Receipt Date: 20090630
  Transmission Date: 20120825
  Serious: No
  Sender: FDA-Public Use
  Company Number: US-TEVA-2009007487

PATIENT
  Age: 71 Year
  Sex: Male

DRUGS (6)
  1. ALLOPURINOL [Concomitant]
     Dates: end: 20090101
  2. ALLOPURINOL [Concomitant]
     Dosage: 300 MILLIGRAM;
     Dates: start: 20090513, end: 20090601
  3. RITUXAN [Concomitant]
  4. VALTREX [Concomitant]
  5. RITUXAN [Concomitant]
     Dosage: 28.7857 MILLIGRAM;
     Dates: start: 20090513
  6. TREANDA [Suspect]
     Indication: MANTLE CELL LYMPHOMA
     Dosage: 13.7857 MILLIGRAM;
     Route: 042
     Dates: start: 20090513

REACTIONS (1)
  - RASH MACULO-PAPULAR [None]
